FAERS Safety Report 7839544-9 (Version None)
Quarter: 2011Q4

REPORT INFORMATION
  Report Type: 
  Country: None (occurrence: None)
  Receive Date: 20111024
  Receipt Date: 20101130
  Transmission Date: 20120403
  Serious: No
  Sender: FDA-Public Use
  Company Number: US-ABBOTT-10P-163-0688646-00

PATIENT
  Sex: Female

DRUGS (4)
  1. STIMS [Suspect]
     Indication: PRODUCT USED FOR UNKNOWN INDICATION
  2. MENOPUR [Suspect]
     Indication: PRODUCT USED FOR UNKNOWN INDICATION
  3. FOLLISTIM [Suspect]
     Indication: PRODUCT USED FOR UNKNOWN INDICATION
  4. LUPRON DEPOT [Suspect]
     Indication: PRODUCT USED FOR UNKNOWN INDICATION

REACTIONS (3)
  - MOOD SWINGS [None]
  - CRYING [None]
  - DEPRESSED MOOD [None]
